FAERS Safety Report 8354036 (Version 6)
Quarter: 2013Q3

REPORT INFORMATION
  Report Type: Report from Study
  Country: JP (occurrence: JP)
  Receive Date: 20120125
  Receipt Date: 20130909
  Transmission Date: 20140515
  Serious: Yes (Death, Hospitalization, Other)
  Sender: FDA-Public Use
  Company Number: JP-ABBOTT-12P-087-0895947-00

PATIENT
  Age: 90 Year
  Sex: Female
  Weight: 56.5 kg

DRUGS (17)
  1. HUMIRA 40 MG/ 0.8 ML PRE-FILLED SYRINGE [Suspect]
     Indication: RHEUMATOID ARTHRITIS
     Route: 058
     Dates: start: 20090622, end: 20111108
  2. LOXOPROFEN SODIUM HYDRATE [Concomitant]
     Indication: RHEUMATOID ARTHRITIS
     Route: 048
     Dates: start: 20071025, end: 20111216
  3. PREDNISOLONE [Concomitant]
     Indication: RHEUMATOID ARTHRITIS
     Route: 048
     Dates: start: 20071122, end: 20111125
  4. REBAMIPIDE [Concomitant]
     Indication: GASTRITIS PROPHYLAXIS
     Route: 048
     Dates: start: 20080214, end: 20111216
  5. CANDESARTAN CILEXETIL [Concomitant]
     Indication: HYPERTENSION
     Route: 048
     Dates: start: 20080410, end: 20111216
  6. CILOSTAZOL [Concomitant]
     Indication: PROPHYLAXIS
     Route: 048
     Dates: start: 20080410, end: 20111216
  7. CILOSTAZOL [Concomitant]
     Indication: ADVERSE EVENT
  8. ETIZOLAM [Concomitant]
     Indication: PROPHYLAXIS
     Route: 048
     Dates: start: 20080410, end: 20111216
  9. ETIZOLAM [Concomitant]
     Indication: ADVERSE EVENT
  10. VERAPAMIL HYDROCHLORIDE [Concomitant]
     Indication: ARRHYTHMIA
     Route: 048
     Dates: start: 20080410, end: 20111216
  11. FUROSEMIDE [Concomitant]
     Indication: ARRHYTHMIA
     Route: 048
     Dates: start: 20080410, end: 20111216
  12. SITAGLIPTIN PHOSPHATE HYDRATE [Concomitant]
     Indication: DIABETES MELLITUS
     Route: 048
     Dates: start: 20100803, end: 20111216
  13. MECOBALAMIN [Concomitant]
     Indication: PROPHYLAXIS
     Route: 048
     Dates: start: 20080828, end: 20111216
  14. MECOBALAMIN [Concomitant]
     Indication: ADVERSE EVENT
  15. FERROUS FUMARATE [Concomitant]
     Indication: ANAEMIA
     Route: 048
     Dates: start: 20111011, end: 20111212
  16. NILVADIPINE [Concomitant]
     Indication: PRODUCT USED FOR UNKNOWN INDICATION
     Dates: end: 20111216
  17. FELBINAC [Concomitant]
     Indication: RHEUMATOID ARTHRITIS
     Dates: end: 20111216

REACTIONS (11)
  - Disseminated intravascular coagulation [Fatal]
  - Sepsis [Fatal]
  - Cardiac arrest [Fatal]
  - Contusion [Fatal]
  - Fall [Fatal]
  - Pain [Unknown]
  - Staphylococcal bacteraemia [Unknown]
  - Candiduria [Unknown]
  - Urinary tract infection [Recovered/Resolved]
  - Hypokinesia [Unknown]
  - Contusion [Unknown]
